FAERS Safety Report 7609610-1 (Version None)
Quarter: 2011Q3

REPORT INFORMATION
  Report Type: 
  Country: None (occurrence: None)
  Receive Date: 20110714
  Receipt Date: 20090915
  Transmission Date: 20111222
  Serious: Yes (Hospitalization)
  Sender: FDA-Public Use
  Company Number: US-PFIZER INC-2009226926

PATIENT
  Sex: Female
  Weight: 74.7 kg

DRUGS (3)
  1. TIKOSYN [Suspect]
     Indication: ATRIAL FIBRILLATION
     Dosage: 500 MG, 2X/DAY
     Route: 048
     Dates: start: 20090610, end: 20090101
  2. PROPAFENONE [Concomitant]
  3. WARFARIN [Concomitant]
     Dosage: UNK

REACTIONS (4)
  - FLUSHING [None]
  - DIZZINESS [None]
  - HEADACHE [None]
  - SINUSITIS [None]
